FAERS Safety Report 19177128 (Version 1)
Quarter: 2021Q2

REPORT INFORMATION
  Report Type: Spontaneous
  Country: US (occurrence: US)
  Receive Date: 20210424
  Receipt Date: 20210424
  Transmission Date: 20210717
  Serious: No
  Sender: FDA-Public Use
  Company Number: US-SENTYNL THERAPEUTICS, INC.  -2109778

PATIENT
  Sex: Female

DRUGS (9)
  1. NIMODIPINE. [Concomitant]
     Active Substance: NIMODIPINE
  2. HYDROEYES VITAMINS [Concomitant]
  3. LEVORPHANOL TARTRATE. [Suspect]
     Active Substance: LEVORPHANOL TARTRATE
     Indication: COMPLEX REGIONAL PAIN SYNDROME
     Route: 048
  4. ERYTHROMYCIN. [Concomitant]
     Active Substance: ERYTHROMYCIN
     Route: 047
  5. DOXYCYCLINE. [Concomitant]
     Active Substance: DOXYCYCLINE
  6. RESTASIS [Concomitant]
     Active Substance: CYCLOSPORINE
  7. FLECTOR [Concomitant]
     Active Substance: DICLOFENAC EPOLAMINE
  8. BRUDER EYE MASK [Concomitant]
  9. REFRESH OMEGA DROPS [Concomitant]
     Route: 047

REACTIONS (1)
  - Inability to afford medication [Unknown]
